FAERS Safety Report 6432581-0 (Version None)
Quarter: 2009Q4

REPORT INFORMATION
  Report Type: 
  Country: None (occurrence: None)
  Receive Date: 20091109
  Receipt Date: 20091030
  Transmission Date: 20100525
  Serious: Yes (Hospitalization)
  Sender: FDA-Public Use
  Company Number: US-ASTRAZENECA-2009SE23539

PATIENT
  Age: 23899 Day
  Sex: Female

DRUGS (11)
  1. CRESTOR [Suspect]
     Route: 048
     Dates: start: 20090901
  2. SYMBICORT [Suspect]
     Indication: ASTHMA
     Route: 055
  3. ALBUTEROL [Suspect]
     Indication: ASTHMA
     Route: 048
  4. SINGULAIR [Suspect]
     Indication: ASTHMA
  5. ADVAIR DISKUS 100/50 [Suspect]
     Indication: ASTHMA
  6. BROMAID [Suspect]
     Indication: ASTHMA
  7. ANTIBIOTICS [Suspect]
     Indication: ASTHMA
     Route: 042
  8. STEROIDS [Suspect]
     Indication: ASTHMA
  9. ACIPHEX [Concomitant]
  10. SYNTHROID [Concomitant]
  11. TOPAMAX [Concomitant]
     Route: 065

REACTIONS (4)
  - ABDOMINAL PAIN [None]
  - ASTHMA [None]
  - NAUSEA [None]
  - URINARY RETENTION [None]
